FAERS Safety Report 8595818-8 (Version None)
Quarter: 2012Q3

REPORT INFORMATION
  Report Type: 
  Country: None (occurrence: None)
  Receive Date: 20120815
  Receipt Date: 20120806
  Transmission Date: 20120928
  Serious: Yes (Hospitalization, Other)
  Sender: FDA-Public Use
  Company Number: US-ASTRAZENECA-2012SE55373

PATIENT
  Age: 25987 Day
  Sex: Male
  Weight: 83 kg

DRUGS (8)
  1. METFORMIN HYDROCHLORIDE [Concomitant]
     Indication: TYPE 2 DIABETES MELLITUS
     Route: 048
  2. GEMFIBROZIL [Concomitant]
     Indication: BLOOD TRIGLYCERIDES INCREASED
     Route: 048
  3. NEURONTIN [Concomitant]
     Indication: NEUROPATHY PERIPHERAL
     Route: 048
  4. NEXIUM [Suspect]
     Indication: GASTRITIS
     Route: 048
     Dates: start: 20070829, end: 20101108
  5. CREON [Concomitant]
     Indication: PANCREATIC INSUFFICIENCY
     Dosage: 2-3 CAPSULES, BEFORE MEALS
     Route: 048
  6. AMITRIPTYLINE HCL [Concomitant]
     Indication: NEUROPATHY PERIPHERAL
     Route: 048
  7. NEXIUM [Suspect]
     Route: 048
     Dates: start: 20101108, end: 20120702
  8. PLAVIX [Concomitant]
     Indication: ANTICOAGULANT THERAPY
     Route: 048

REACTIONS (5)
  - CHEST PAIN [None]
  - VERTEBROBASILAR INSUFFICIENCY [None]
  - OFF LABEL USE [None]
  - CAROTID ARTERY OCCLUSION [None]
  - SPINAL DISORDER [None]
